FAERS Safety Report 8286025-7 (Version None)
Quarter: 2012Q2

REPORT INFORMATION
  Report Type: 
  Country: None (occurrence: None)
  Receive Date: 20120416
  Receipt Date: 20120404
  Transmission Date: 20120825
  Serious: Yes (Hospitalization)
  Sender: FDA-Public Use
  Company Number: JP-BIOGENIDEC-2011BI002182

PATIENT
  Age: 30 Year
  Sex: Female

DRUGS (13)
  1. SELBEX [Concomitant]
     Indication: PRODUCT USED FOR UNKNOWN INDICATION
     Dates: start: 20100830
  2. ANTEBATE [Concomitant]
     Dates: start: 20101108
  3. SOLU-MEDROL [Concomitant]
     Dates: start: 20101004, end: 20101006
  4. AVONEX [Suspect]
     Indication: RELAPSING-REMITTING MULTIPLE SCLEROSIS
     Route: 030
     Dates: start: 20100510
  5. ZITHROMAX [Concomitant]
     Indication: PRODUCT USED FOR UNKNOWN INDICATION
     Dates: start: 20110502, end: 20110504
  6. PREDNISOLONE [Concomitant]
     Dates: start: 20101108
  7. SOLITA (LACTATED RINGERS SOLUTION) [Concomitant]
     Dates: start: 20100830, end: 20100901
  8. SOLITA (LACTATED RINGERS SOLUTION) [Concomitant]
     Dates: start: 20101004, end: 20101006
  9. BROTIZOLAM [Concomitant]
     Indication: PRODUCT USED FOR UNKNOWN INDICATION
     Dates: start: 20100830, end: 20110112
  10. LOXONIN [Concomitant]
     Indication: PRODUCT USED FOR UNKNOWN INDICATION
     Dates: start: 20100603
  11. HIRUDOID [Concomitant]
     Dates: start: 20101108
  12. SOLU-MEDROL [Concomitant]
     Dates: start: 20100830, end: 20100901
  13. LENDORMIN [Concomitant]
     Indication: PRODUCT USED FOR UNKNOWN INDICATION
     Dates: start: 20110113

REACTIONS (7)
  - GINGIVAL PAIN [None]
  - NASOPHARYNGITIS [None]
  - BLEPHAROSPASM [None]
  - MULTIPLE SCLEROSIS RELAPSE [None]
  - HYPOAESTHESIA [None]
  - MUSCLE SPASMS [None]
  - RASH [None]
